FAERS Safety Report 9678794 (Version 1)
Quarter: 2013Q4

REPORT INFORMATION
  Report Type: Spontaneous
  Country: US (occurrence: US)
  Receive Date: 20131108
  Receipt Date: 20131108
  Transmission Date: 20140711
  Serious: Yes (Hospitalization)
  Sender: FDA-Public Use
  Company Number: US-GLAXOSMITHKLINE-A1047909A

PATIENT
  Age: 53 Year
  Sex: Female

DRUGS (19)
  1. ADVAIR [Suspect]
     Indication: CHRONIC OBSTRUCTIVE PULMONARY DISEASE
     Dosage: 1PUFF TWICE PER DAY
     Route: 055
     Dates: start: 2012
  2. COMBIVENT [Concomitant]
  3. ATORVASTATIN [Concomitant]
  4. WARFARIN [Concomitant]
  5. AMITRIPTYLINE [Concomitant]
  6. ZOLPIDEM [Concomitant]
  7. OXYCODONE [Concomitant]
  8. SOMA [Concomitant]
  9. GABAPENTIN [Concomitant]
  10. LISINOPRIL [Concomitant]
  11. PROTONIX [Concomitant]
  12. METFORMIN [Concomitant]
  13. PREDNISONE [Concomitant]
  14. AZITHROMYCIN [Concomitant]
  15. ACYCLOVIR [Concomitant]
  16. AZELASTINE [Concomitant]
  17. ALBUTEROL SULFATE [Concomitant]
  18. ASTHMA MEDICATION [Concomitant]
  19. OXYGEN [Concomitant]

REACTIONS (8)
  - Thrombotic stroke [Unknown]
  - Thrombosis [Unknown]
  - Hypoaesthesia [Unknown]
  - Facial paresis [Unknown]
  - Angiopathy [Unknown]
  - Local swelling [Unknown]
  - Asthma [Unknown]
  - Disease progression [Unknown]
